FAERS Safety Report 6832033-X (Version None)
Quarter: 2010Q3

REPORT INFORMATION
  Report Type: 
  Country: None (occurrence: None)
  Receive Date: 20100712
  Receipt Date: 20100630
  Transmission Date: 20110219
  Serious: Yes (Hospitalization)
  Sender: FDA-Public Use
  Company Number: DE-BRISTOL-MYERS SQUIBB COMPANY-15085202

PATIENT
  Age: 71 Year
  Sex: Male

DRUGS (18)
  1. APIXABAN [Suspect]
     Indication: THROMBOSIS PROPHYLAXIS
     Route: 048
     Dates: start: 20080418
  2. WARFARIN SODIUM [Suspect]
     Indication: THROMBOSIS PROPHYLAXIS
     Dosage: VARIABLE TOTAL DAILY DOSE
     Route: 048
     Dates: start: 20080418
  3. PLACEBO [Suspect]
     Indication: THROMBOSIS PROPHYLAXIS
     Route: 048
     Dates: start: 20080418
  4. ACETYLSALICYLIC ACID [Concomitant]
     Indication: CARDIAC DISORDER
     Dosage: ASS 100 PRESTUDY/ONGOING
  5. RAMIPRIL [Concomitant]
     Indication: HYPERTENSION
     Dosage: PRESTUDY/ONGOING
  6. BISOPROLOL [Concomitant]
     Indication: CARDIAC DISORDER
     Dosage: PRESTUDY/ONGOING
  7. HYDROCHLOROTHIAZIDE [Concomitant]
     Indication: CARDIAC DISORDER
     Dosage: PRESTUDY/ONGOING
  8. SPIRONOLACTONE [Concomitant]
     Indication: CARDIAC DISORDER
     Dosage: PRESTUDY/ONGOING
  9. FUROSEMIDE [Concomitant]
     Indication: CARDIAC DISORDER
     Dosage: PRESTUDY/ONGOING
  10. DIGITOXIN [Concomitant]
     Dosage: PRESTUDY/ONGOING
  11. MAGNESIUM [Concomitant]
     Dosage: PRESTUDY/ONGOING
  12. ALLOPURINOL [Concomitant]
     Indication: GOUT
     Dosage: ONGOING
  13. PANTOPRAZOLE [Concomitant]
     Indication: PROPHYLAXIS
     Dosage: PRESTUDY/ONGOING
  14. DIMETHICONE [Concomitant]
     Indication: FLATULENCE
     Dosage: PRESTUDY/ONGOING
  15. INSULIN ACTRAPID [Concomitant]
     Indication: DIABETES MELLITUS
     Dosage: NACH PLAN, PRESTUDY/ONGOING
  16. PROTAPHANE [Concomitant]
     Indication: DIABETES MELLITUS
     Dosage: NACH PLAN. PRESTUDY/ONGOING
  17. SPIRIVA [Concomitant]
     Indication: CHRONIC OBSTRUCTIVE PULMONARY DISEASE
     Dosage: PRESTUDY/ONGOING
  18. FORADIL [Concomitant]
     Indication: CHRONIC OBSTRUCTIVE PULMONARY DISEASE
     Dosage: PRESTUDY/ONGOING

REACTIONS (1)
  - PSORIASIS [None]
